FAERS Safety Report 24245870 (Version 3)
Quarter: 2024Q3

REPORT INFORMATION
  Report Type: Report from Study
  Country: US (occurrence: US)
  Receive Date: 20240824
  Receipt Date: 20240917
  Transmission Date: 20241016
  Serious: Yes (Hospitalization, Other)
  Sender: ABBVIE
  Company Number: US-ABBVIE-5881393

PATIENT
  Sex: Female
  Weight: 63 kg

DRUGS (10)
  1. SKYRIZI [Suspect]
     Active Substance: RISANKIZUMAB-RZAA
     Indication: Psoriasis
     Dosage: FORM STRENGTH: 150 MILLIGRAM
     Route: 058
     Dates: start: 20210223, end: 20240408
  2. SKYRIZI [Suspect]
     Active Substance: RISANKIZUMAB-RZAA
     Dosage: FORM STRENGTH: 150 MILLIGRAM
     Route: 058
     Dates: start: 20240802
  3. CLOTRIMAZOLE [Concomitant]
     Active Substance: CLOTRIMAZOLE
     Indication: Fungal infection
  4. VITAMIN C [Concomitant]
     Active Substance: ASCORBIC ACID
     Indication: Product used for unknown indication
     Dosage: FORM STRENGTH: 500 MILLIGRAM
  5. METOPROLOL [Concomitant]
     Active Substance: METOPROLOL
     Indication: Product used for unknown indication
  6. TEMAZEPAM [Concomitant]
     Active Substance: TEMAZEPAM
     Indication: Sleep disorder
     Dosage: FORM STRENGTH: 30 MILLIGRAM
  7. VITAMIN D [Concomitant]
     Active Substance: VITAMIN D NOS
     Indication: Product used for unknown indication
  8. VITAMIN B12 [Concomitant]
     Active Substance: CYANOCOBALAMIN
     Indication: Product used for unknown indication
  9. FLUOXETINE [Concomitant]
     Active Substance: FLUOXETINE HYDROCHLORIDE
     Indication: Product used for unknown indication
  10. ESTRADIOL [Concomitant]
     Active Substance: ESTRADIOL
     Indication: Hormone therapy

REACTIONS (5)
  - Vomiting [Recovered/Resolved]
  - Blood magnesium decreased [Recovered/Resolved]
  - Blood sodium decreased [Recovered/Resolved]
  - Impaired gastric emptying [Not Recovered/Not Resolved]
  - Feeding disorder [Recovered/Resolved]

NARRATIVE: CASE EVENT DATE: 20240101
